FAERS Safety Report 18079642 (Version 2)
Quarter: 2020Q3

REPORT INFORMATION
  Report Type: Spontaneous
  Country: CH (occurrence: CH)
  Receive Date: 20200728
  Receipt Date: 20200805
  Transmission Date: 20201103
  Serious: Yes (Life-Threatening, Hospitalization)
  Sender: FDA-Public Use
  Company Number: NVSC2020CH207268

PATIENT
  Sex: Female

DRUGS (10)
  1. COSENTYX [Suspect]
     Active Substance: SECUKINUMAB
     Dosage: 150 MG, PRE FILLED SYRINGE
     Route: 065
     Dates: start: 20200522
  2. COSENTYX [Suspect]
     Active Substance: SECUKINUMAB
     Dosage: 150 MG, PRE FILLED SYRINGE
     Route: 065
     Dates: start: 20200508
  3. COSENTYX [Suspect]
     Active Substance: SECUKINUMAB
     Dosage: 150 MG, PRE FILLED SYRINGE
     Route: 065
     Dates: start: 20200619
  4. COSENTYX [Suspect]
     Active Substance: SECUKINUMAB
     Dosage: 150 MG, PRE FILLED PEN
     Route: 065
     Dates: start: 20200501
  5. COSENTYX [Suspect]
     Active Substance: SECUKINUMAB
     Dosage: 150 MG, PRE FILLED PEN
     Route: 065
     Dates: start: 20200717
  6. PREDNISOLONE. [Concomitant]
     Active Substance: PREDNISOLONE
     Indication: PRODUCT USED FOR UNKNOWN INDICATION
     Dosage: 7.5 MG
     Route: 065
     Dates: end: 201911
  7. PREDNISOLONE. [Concomitant]
     Active Substance: PREDNISOLONE
     Dosage: 75 UNK
     Route: 065
  8. IBUPROFEN. [Concomitant]
     Active Substance: IBUPROFEN
     Indication: PRODUCT USED FOR UNKNOWN INDICATION
     Dosage: 600 MG, 2 TO 3 TIMES A DAY
     Route: 065
  9. COSENTYX [Suspect]
     Active Substance: SECUKINUMAB
     Indication: RHEUMATIC DISORDER
     Dosage: 150 MG,  PRE?FILLED PEN
     Route: 065
     Dates: start: 20200424
  10. COSENTYX [Suspect]
     Active Substance: SECUKINUMAB
     Dosage: 150 MG, PRE FILLED SYRINGE
     Route: 065
     Dates: start: 20200515

REACTIONS (15)
  - Anaphylactic shock [Unknown]
  - Visual impairment [Recovering/Resolving]
  - Secretion discharge [Recovering/Resolving]
  - Pruritus [Recovering/Resolving]
  - Performance status decreased [Recovered/Resolved]
  - Swelling [Not Recovered/Not Resolved]
  - Swelling [Recovering/Resolving]
  - Throat tightness [Recovering/Resolving]
  - Abdominal pain upper [Recovering/Resolving]
  - Speech disorder [Recovering/Resolving]
  - Headache [Recovered/Resolved]
  - Sleep disorder [Recovered/Resolved]
  - Blood pressure decreased [Recovering/Resolving]
  - Chest pain [Recovered/Resolved]
  - Pruritus [Not Recovered/Not Resolved]

NARRATIVE: CASE EVENT DATE: 20200716
